FAERS Safety Report 6677261-1 (Version None)
Quarter: 2010Q2

REPORT INFORMATION
  Report Type: 
  Country: None (occurrence: None)
  Receive Date: 20100408
  Receipt Date: 20100408
  Transmission Date: 20101027
  Serious: Yes (Other)
  Sender: FDA-Public Use
  Company Number: None

PATIENT
  Age: 6 Month
  Sex: Male
  Weight: 6.804 kg

DRUGS (2)
  1. RANATIDINE [Suspect]
     Indication: GASTROOESOPHAGEAL REFLUX DISEASE
     Dosage: 150/5 ONCE ML BID
     Dates: start: 20090820
  2. RANATIDINE [Suspect]
     Indication: GASTROOESOPHAGEAL REFLUX DISEASE
     Dosage: 150/5 ONCE ML BID
     Dates: start: 20091021

REACTIONS (2)
  - GASTROOESOPHAGEAL REFLUX DISEASE [None]
  - PRODUCT SUBSTITUTION ISSUE [None]
